FAERS Safety Report 25905480 (Version 1)
Quarter: 2025Q4

REPORT INFORMATION
  Report Type: Spontaneous
  Country: US (occurrence: US)
  Receive Date: 20251010
  Receipt Date: 20251010
  Transmission Date: 20260118
  Serious: No
  Sender: CIPLA
  Company Number: US-CIPLA LTD.-2025US00435

PATIENT

DRUGS (1)
  1. ESCITALOPRAM [Suspect]
     Active Substance: ESCITALOPRAM OXALATE
     Indication: Product used for unknown indication
     Dosage: UNK
     Route: 065

REACTIONS (5)
  - Illness [Unknown]
  - Feeling abnormal [Unknown]
  - Dizziness [Unknown]
  - Headache [Unknown]
  - Somnolence [Unknown]

NARRATIVE: CASE EVENT DATE: 20241201
